FAERS Safety Report 7116045-7 (Version None)
Quarter: 2010Q4

REPORT INFORMATION
  Report Type: 
  Country: None (occurrence: None)
  Receive Date: 20101122
  Receipt Date: 20101110
  Transmission Date: 20110411
  Serious: Yes (Death)
  Sender: FDA-Public Use
  Company Number: CO-ROCHE-740877

PATIENT
  Sex: Female

DRUGS (2)
  1. AVASTIN [Suspect]
     Indication: COLORECTAL CANCER
     Dosage: FREQUENCY REPORTED AS Q21 DAYS
     Route: 042
     Dates: start: 20100922, end: 20100922
  2. XELODA [Suspect]
     Indication: COLORECTAL CANCER
     Dosage: FREQUENCY REPORTED AS QD (DAILY)
     Route: 048
     Dates: start: 20100922, end: 20101015

REACTIONS (1)
  - MALIGNANT NEOPLASM PROGRESSION [None]
